FAERS Safety Report 17692525 (Version 1)
Quarter: 2020Q2

REPORT INFORMATION
  Report Type: Spontaneous
  Country: US (occurrence: US)
  Receive Date: 20200421
  Receipt Date: 20200421
  Transmission Date: 20200714
  Serious: No
  Sender: FDA-Public Use
  Company Number: None

PATIENT
  Age: 31 Year
  Sex: Female
  Weight: 116.55 kg

DRUGS (9)
  1. PRILOSEC [Concomitant]
     Active Substance: OMEPRAZOLE MAGNESIUM
  2. SINGULAIR [Concomitant]
     Active Substance: MONTELUKAST SODIUM
  3. CELEXA [Concomitant]
     Active Substance: CITALOPRAM HYDROBROMIDE
  4. METOPROLOL. [Concomitant]
     Active Substance: METOPROLOL
  5. MONTELUKAST [Suspect]
     Active Substance: MONTELUKAST SODIUM
     Indication: CHRONIC SINUSITIS
  6. ALLEGRA [Concomitant]
     Active Substance: FEXOFENADINE HYDROCHLORIDE
  7. FLONASE [Concomitant]
     Active Substance: FLUTICASONE PROPIONATE
  8. PRISTIQ EXTENDED-RELEASE [Concomitant]
     Active Substance: DESVENLAFAXINE SUCCINATE
  9. LAMICTAL [Concomitant]
     Active Substance: LAMOTRIGINE

REACTIONS (9)
  - Irritability [None]
  - Obsessive-compulsive symptom [None]
  - Memory impairment [None]
  - Restlessness [None]
  - Suicidal ideation [None]
  - Depression [None]
  - Anxiety [None]
  - Agitation [None]
  - Dyskinesia [None]
